FAERS Safety Report 6059287-4 (Version None)
Quarter: 2009Q1

REPORT INFORMATION
  Report Type: 
  Country: None (occurrence: None)
  Receive Date: 20090130
  Receipt Date: 20090119
  Transmission Date: 20090719
  Serious: Yes (Other)
  Sender: FDA-Public Use
  Company Number: CS-ROCHE-610935

PATIENT
  Age: 60 Year
  Sex: Male

DRUGS (3)
  1. CAPECITABINE [Suspect]
     Dosage: 3000 MG IN THREE DIVIDED DOSES
     Route: 065
  2. FLUOROURACIL [Suspect]
     Route: 065
  3. LEUCOVORIN [Suspect]
     Route: 065

REACTIONS (2)
  - ANGINA PECTORIS [None]
  - METASTASES TO LIVER [None]
